FAERS Safety Report 10400673 (Version 1)
Quarter: 2014Q3

REPORT INFORMATION
  Report Type: Spontaneous
  Country: US (occurrence: US)
  Receive Date: 20140821
  Receipt Date: 20140821
  Transmission Date: 20150326
  Serious: No
  Sender: FDA-Public Use
  Company Number: US-ASTRAZENECA-2014SE09280

PATIENT
  Sex: Female

DRUGS (2)
  1. ADVAIL DISC [Concomitant]
     Dosage: 250 100
     Route: 065
  2. SYMBICORT [Suspect]
     Active Substance: BUDESONIDE\FORMOTEROL FUMARATE DIHYDRATE
     Dosage: 2 PUFFS BID
     Route: 055

REACTIONS (4)
  - Dyspnoea [Unknown]
  - Cough [Unknown]
  - Asthma [Unknown]
  - Insomnia [Unknown]

NARRATIVE: CASE EVENT DATE: 201401
